FAERS Safety Report 10381062 (Version 1)
Quarter: 2014Q3

REPORT INFORMATION
  Report Type: Spontaneous
  Country: US (occurrence: None)
  Receive Date: 20140812
  Receipt Date: 20140812
  Transmission Date: 20150326
  Serious: Yes (Life-Threatening, Hospitalization, Disabling)
  Sender: FDA-Public Use
  Company Number: None

PATIENT
  Age: 70 Year
  Sex: Female
  Weight: 49.9 kg

DRUGS (5)
  1. MIRABEGRON [Concomitant]
     Active Substance: MIRABEGRON
  2. TOVIAZ [Concomitant]
     Active Substance: FESOTERODINE FUMARATE
  3. SIMVASTATIN. [Concomitant]
     Active Substance: SIMVASTATIN
  4. XARELTO [Suspect]
     Active Substance: RIVAROXABAN
     Indication: ATRIAL FIBRILLATION
     Route: 048
  5. PANTOPRAZOLE [Concomitant]
     Active Substance: PANTOPRAZOLE SODIUM

REACTIONS (7)
  - Confusional state [None]
  - Terminal insomnia [None]
  - Abasia [None]
  - Cerebral haematoma [None]
  - Muscular weakness [None]
  - Blood pressure increased [None]
  - Asthenia [None]

NARRATIVE: CASE EVENT DATE: 20140513
